FAERS Safety Report 9685541 (Version 1)
Quarter: 2013Q4

REPORT INFORMATION
  Report Type: Spontaneous
  Country: CA (occurrence: CA)
  Receive Date: 20131113
  Receipt Date: 20131113
  Transmission Date: 20140711
  Serious: Yes (Disabling)
  Sender: FDA-Public Use
  Company Number: CA-ASTRAZENECA-2013SE81150

PATIENT
  Age: 81 Year
  Sex: Male
  Weight: 72.6 kg

DRUGS (3)
  1. NEXIUM [Suspect]
     Route: 048
  2. ASPIRIN [Concomitant]
  3. SYNTHROID [Concomitant]

REACTIONS (8)
  - Influenza like illness [Recovered/Resolved]
  - Musculoskeletal stiffness [Recovered/Resolved]
  - Night sweats [Recovered/Resolved]
  - Sensation of heaviness [Recovered/Resolved]
  - Headache [Recovered/Resolved]
  - Hyperhidrosis [Recovered/Resolved]
  - Myalgia [Recovered/Resolved]
  - Paraesthesia [Recovered/Resolved]
